FAERS Safety Report 23508836 (Version 2)
Quarter: 2024Q2

REPORT INFORMATION
  Report Type: Spontaneous
  Country: US (occurrence: US)
  Receive Date: 20240209
  Receipt Date: 20240612
  Transmission Date: 20240716
  Serious: No
  Sender: FDA-Public Use
  Company Number: US-Calliditas-2024CAL00184

PATIENT
  Age: 56 Year
  Sex: Male

DRUGS (2)
  1. TARPEYO [Suspect]
     Active Substance: BUDESONIDE
     Indication: IgA nephropathy
     Dosage: INCREASED TO 16 MG
     Route: 048
     Dates: start: 20230927
  2. HYDROXYZINE [Suspect]
     Active Substance: HYDROXYZINE HYDROCHLORIDE
     Indication: Pruritus
     Dates: end: 202402

REACTIONS (8)
  - Pruritus [Unknown]
  - Product use issue [Unknown]
  - Diplopia [Unknown]
  - Fatigue [Unknown]
  - Dysarthria [Unknown]
  - Blood pressure increased [Recovered/Resolved]
  - Prescribed underdose [Recovered/Resolved]
  - Dizziness [Unknown]

NARRATIVE: CASE EVENT DATE: 20240401
